FAERS Safety Report 23064006 (Version 3)
Quarter: 2024Q4

REPORT INFORMATION
  Report Type: Spontaneous
  Country: VN (occurrence: VN)
  Receive Date: 20231013
  Receipt Date: 20241128
  Transmission Date: 20250114
  Serious: Yes (Other)
  Sender: SANDOZ
  Company Number: VN-002147023-NVSC2023VN119584

PATIENT
  Age: 63 Year
  Sex: Male
  Weight: 60.7 kg

DRUGS (11)
  1. CLOFAZIMINE [Suspect]
     Active Substance: CLOFAZIMINE
     Indication: Tuberculosis
     Dosage: 100 MG (100 MG/100 MG)
     Route: 048
     Dates: start: 20230406, end: 20230504
  2. CLOFAZIMINE [Suspect]
     Active Substance: CLOFAZIMINE
     Dosage: 100 MG (100 MG/100 MG)
     Route: 048
     Dates: start: 20230523
  3. DELAMANID [Suspect]
     Active Substance: DELAMANID
     Indication: Tuberculosis
     Dosage: 300 MG
     Route: 048
     Dates: start: 20230406, end: 20230523
  4. LEVOFLOXACIN [Suspect]
     Active Substance: LEVOFLOXACIN
     Indication: Tuberculosis
     Dosage: 1000 MG (1000 MG/250MG)
     Route: 048
     Dates: start: 20230406, end: 20230504
  5. LEVOFLOXACIN [Suspect]
     Active Substance: LEVOFLOXACIN
     Dosage: 1000 MG (1000 MG/250MG)
     Route: 048
     Dates: start: 20230523
  6. LINEZOLID [Suspect]
     Active Substance: LINEZOLID
     Indication: Tuberculosis
     Dosage: 1200 MG (1200 MG/600 MG)
     Route: 048
     Dates: start: 20230406, end: 20230430
  7. LINEZOLID [Suspect]
     Active Substance: LINEZOLID
     Dosage: 1200 MG (1200 MG/600 MG)
     Route: 048
     Dates: start: 20230501, end: 20230501
  8. LINEZOLID [Suspect]
     Active Substance: LINEZOLID
     Dosage: UNK
     Route: 065
     Dates: start: 20230501, end: 20230523
  9. SIRTURO [Suspect]
     Active Substance: BEDAQUILINE FUMARATE
     Indication: Tuberculosis
     Dosage: 200 MG (200 MG/100 MG)
     Route: 048
     Dates: start: 20230406, end: 20230504
  10. SIRTURO [Suspect]
     Active Substance: BEDAQUILINE FUMARATE
     Dosage: 200 MG (200 MG/100 MG)
     Route: 048
     Dates: start: 20230523
  11. MIXTARD HUMAN 70/30 [Concomitant]
     Active Substance: INSULIN HUMAN
     Indication: Product used for unknown indication
     Dosage: 15 IU, QD (DAILY)
     Route: 058
     Dates: start: 202303

REACTIONS (1)
  - Optic neuritis [Recovered/Resolved with Sequelae]

NARRATIVE: CASE EVENT DATE: 20230504
